FAERS Safety Report 12700091 (Version 2)
Quarter: 2016Q3

REPORT INFORMATION
  Report Type: Spontaneous
  Country: US (occurrence: US)
  Receive Date: 20160830
  Receipt Date: 20160910
  Transmission Date: 20161109
  Serious: No
  Sender: FDA-Public Use
  Company Number: US-TEVA-675617USA

PATIENT
  Age: 47 Year
  Sex: Male
  Weight: 93.07 kg

DRUGS (1)
  1. PROAIR HFA [Suspect]
     Active Substance: ALBUTEROL SULFATE
     Indication: HYPERSENSITIVITY
     Dosage: 1-2 PUFFS , EVERY 4-6 HOURS
     Route: 065
     Dates: start: 2011

REACTIONS (1)
  - Alcohol test false positive [Unknown]

NARRATIVE: CASE EVENT DATE: 20160705
